FAERS Safety Report 8286339-0 (Version None)
Quarter: 2012Q2

REPORT INFORMATION
  Report Type: 
  Country: None (occurrence: None)
  Receive Date: 20120411
  Receipt Date: 20120411
  Transmission Date: 20120825
  Serious: Yes (Disabling, Other)
  Sender: FDA-Public Use
  Company Number: None

PATIENT
  Sex: Female
  Weight: 59.8748 kg

DRUGS (1)
  1. KENALOG [Suspect]
     Indication: ECZEMA
     Dosage: 40 MG ONLY ONCE
     Route: 058
     Dates: start: 20090401

REACTIONS (9)
  - PRURITUS [None]
  - SKIN DISORDER [None]
  - NERVE INJURY [None]
  - UNEVALUABLE EVENT [None]
  - MOOD SWINGS [None]
  - FATIGUE [None]
  - HAIR DISORDER [None]
  - INJECTION SITE INDURATION [None]
  - HEADACHE [None]
